FAERS Safety Report 15771216 (Version 2)
Quarter: 2019Q1

REPORT INFORMATION
  Report Type: Spontaneous
  Country: JP (occurrence: JP)
  Receive Date: 20181228
  Receipt Date: 20190103
  Transmission Date: 20190417
  Serious: Yes (Hospitalization, Other)
  Sender: FDA-Public Use
  Company Number: JP-PFIZER INC-2018527340

PATIENT
  Age: 75 Year
  Sex: Male

DRUGS (1)
  1. SUTENT [Suspect]
     Active Substance: SUNITINIB MALATE
     Indication: RENAL CANCER
     Dosage: UNK UNK, CYCLIC (2 WEEKS ON, 1 WEEK OFF)
     Route: 048
     Dates: start: 201211

REACTIONS (4)
  - Renal failure [Unknown]
  - Neoplasm progression [Unknown]
  - Hypertension [Unknown]
  - Aortic dissection [Not Recovered/Not Resolved]
